FAERS Safety Report 12893132 (Version 1)
Quarter: 2016Q4

REPORT INFORMATION
  Report Type: Report from Study
  Country: US (occurrence: US)
  Receive Date: 20161028
  Receipt Date: 20161028
  Transmission Date: 20170207
  Serious: Yes (Hospitalization, Other)
  Sender: FDA-Public Use
  Company Number: US-BRISTOL-MYERS SQUIBB COMPANY-BMS-2016-084903

PATIENT
  Age: 40 Year
  Sex: Male
  Weight: 81.8 kg

DRUGS (8)
  1. APIXABAN [Suspect]
     Active Substance: APIXABAN
     Indication: PRODUCT USED FOR UNKNOWN INDICATION
     Dosage: 5 MG, BID
     Route: 048
     Dates: start: 20161005, end: 20161005
  2. COLCHICINE. [Concomitant]
     Active Substance: COLCHICINE
     Indication: CHEST PAIN
     Dosage: 1.2 MG, PRN
     Route: 048
     Dates: start: 20161006
  3. APIXABAN [Suspect]
     Active Substance: APIXABAN
     Indication: CEREBROVASCULAR ACCIDENT PROPHYLAXIS
     Dosage: 10 MG, BID
     Route: 048
     Dates: start: 20160907
  4. HEPARIN [Concomitant]
     Active Substance: HEPARIN SODIUM
     Indication: PRODUCT USED FOR UNKNOWN INDICATION
     Dosage: 20000 UNIT, UNK
     Route: 065
  5. DIAZEPAM. [Concomitant]
     Active Substance: DIAZEPAM
     Indication: MIGRAINE
     Dosage: 6 MG, DAILY
     Route: 048
     Dates: start: 201606
  6. OMPRAZOLE [Concomitant]
     Active Substance: OMEPRAZOLE
     Indication: GASTROOESOPHAGEAL REFLUX DISEASE
     Dosage: 20 MG, QD
     Route: 048
     Dates: start: 20161006
  7. ATENOLOL. [Concomitant]
     Active Substance: ATENOLOL
     Indication: PRODUCT USED FOR UNKNOWN INDICATION
     Dosage: 12.5 MG, QD
     Route: 048
     Dates: start: 201606
  8. SUCRALFATE. [Concomitant]
     Active Substance: SUCRALFATE
     Indication: GASTROOESOPHAGEAL REFLUX DISEASE
     Dosage: 4 G, DAILY
     Route: 048
     Dates: start: 20161006

REACTIONS (2)
  - Presyncope [Recovered/Resolved]
  - Hypotension [Unknown]

NARRATIVE: CASE EVENT DATE: 20161008
